FAERS Safety Report 6545998-0 (Version None)
Quarter: 2010Q1

REPORT INFORMATION
  Report Type: 
  Country: None (occurrence: None)
  Receive Date: 20100121
  Receipt Date: 20100121
  Transmission Date: 20100710
  Serious: Yes (Hospitalization)
  Sender: FDA-Public Use
  Company Number: None

PATIENT
  Age: 13 Year
  Sex: Male
  Weight: 45.3597 kg

DRUGS (1)
  1. PROAIR HFA [Suspect]
     Indication: ASTHMA EXERCISE INDUCED
     Dosage: 2 PUFFS AS NEEDED INHAL
     Route: 055
     Dates: start: 20100116, end: 20100116

REACTIONS (4)
  - DEVICE INEFFECTIVE [None]
  - DRUG INEFFECTIVE [None]
  - HEADACHE [None]
  - THROAT IRRITATION [None]
